FAERS Safety Report 18420694 (Version 4)
Quarter: 2021Q1

REPORT INFORMATION
  Report Type: Report from Study
  Country: US (occurrence: US)
  Receive Date: 20201023
  Receipt Date: 20210208
  Transmission Date: 20210419
  Serious: Yes (Hospitalization)
  Sender: FDA-Public Use
  Company Number: US-GILEAD-2020-0500015

PATIENT
  Age: 77 Year
  Sex: Male

DRUGS (61)
  1. CYCLOPHOSPHAMIDE. [Suspect]
     Active Substance: CYCLOPHOSPHAMIDE
     Indication: BONE MARROW CONDITIONING REGIMEN
     Dosage: 500 MG/M2
     Route: 042
     Dates: start: 20200930, end: 20200930
  2. PROCHLORPERAZINE. [Concomitant]
     Active Substance: PROCHLORPERAZINE
     Dosage: DAILY
     Dates: start: 20200930, end: 20201002
  3. ACETAMINOPHEN. [Concomitant]
     Active Substance: ACETAMINOPHEN
     Dosage: ONCE
     Dates: start: 20201005, end: 20201005
  4. CIPROFLOXACIN. [Concomitant]
     Active Substance: CIPROFLOXACIN
     Dosage: ONCE
     Dates: start: 20201010, end: 20201010
  5. CEFEPIME [Concomitant]
     Active Substance: CEFEPIME HYDROCHLORIDE
     Dosage: THREE TIMES DAILY
     Dates: start: 20201011, end: 20201013
  6. CYCLOPHOSPHAMIDE. [Suspect]
     Active Substance: CYCLOPHOSPHAMIDE
     Dosage: 500 MG/M2
     Route: 042
     Dates: start: 20201001, end: 20201001
  7. FLUDARABINE [Suspect]
     Active Substance: FLUDARABINE PHOSPHATE
     Dosage: 30 NG/M2
     Route: 042
     Dates: start: 20201002, end: 20201002
  8. ASPIRIN [ACETYLSALICYLIC ACID] [Concomitant]
     Active Substance: ASPIRIN
     Dosage: DAILY
  9. LACTOBACILLUS BIFIDUS [Concomitant]
     Active Substance: BIFIDOBACTERIUM BIFIDUM
     Dosage: DAILY
     Dates: start: 20170307
  10. POLYETHYLENE GLYCOL 3350. [Concomitant]
     Active Substance: POLYETHYLENE GLYCOL 3350
     Dosage: DAILY
     Dates: start: 20200903
  11. FENTANYL. [Concomitant]
     Active Substance: FENTANYL
     Dosage: TWICE DAILY
     Dates: start: 20200929, end: 20200929
  12. PALONOSETRON. [Concomitant]
     Active Substance: PALONOSETRON HYDROCHLORIDE
     Dosage: ONCE
     Dates: start: 20200930, end: 20200930
  13. CIPROFLOXACIN. [Concomitant]
     Active Substance: CIPROFLOXACIN
     Dosage: DAILY
     Dates: start: 20201014
  14. FOLIC ACID. [Concomitant]
     Active Substance: FOLIC ACID
     Dosage: DAILY
     Dates: start: 20201005
  15. CEFEPIME [Concomitant]
     Active Substance: CEFEPIME HYDROCHLORIDE
     Dosage: TWICE DAILY
     Dates: start: 20201014, end: 20201014
  16. MAGNESIUM SULFATE. [Concomitant]
     Active Substance: MAGNESIUM SULFATE
     Dosage: ONCE
     Dates: start: 20201010, end: 20201010
  17. DEXAMETHASONE. [Concomitant]
     Active Substance: DEXAMETHASONE
     Dosage: ONCE
     Dates: start: 20201012, end: 20201012
  18. UTOMILUMAB [Suspect]
     Active Substance: UTOMILUMAB
     Indication: B-CELL UNCLASSIFIABLE LYMPHOMA HIGH GRADE
     Dosage: 200 MG
     Route: 042
     Dates: start: 20201006, end: 20201006
  19. FERROUS FUMARATE [Concomitant]
     Active Substance: FERROUS FUMARATE
     Dosage: EVERY OTHER DAY
     Dates: start: 20200526
  20. BACITRACIN. [Concomitant]
     Active Substance: BACITRACIN
     Dosage: TWICE DAILY
     Route: 061
     Dates: start: 20201008
  21. AXICABTAGENE CILOLEUCEL [Suspect]
     Active Substance: AXICABTAGENE CILOLEUCEL
     Indication: B-CELL UNCLASSIFIABLE LYMPHOMA HIGH GRADE
     Dosage: 2 X 10/6
     Route: 042
     Dates: start: 20201005, end: 20201005
  22. DOCUSATE [Concomitant]
     Active Substance: DOCUSATE
     Dosage: AS NECESSARY
     Dates: start: 20200903
  23. MIDAZOLAM. [Concomitant]
     Active Substance: MIDAZOLAM
     Dosage: AS NECESSARY
     Dates: start: 20200929, end: 20200929
  24. SODIUM CHLORIDE 0.9% [Concomitant]
     Active Substance: SODIUM CHLORIDE
     Dosage: AS NECESSARY
     Dates: start: 20201012, end: 20201012
  25. LEVETIRACETAM. [Concomitant]
     Active Substance: LEVETIRACETAM
     Dosage: ONCE
     Dates: start: 20201004, end: 20201004
  26. ACETAMINOPHEN. [Concomitant]
     Active Substance: ACETAMINOPHEN
     Dosage: ONCE
     Dates: start: 20201010, end: 20201010
  27. CIPROFLOXACIN. [Concomitant]
     Active Substance: CIPROFLOXACIN
     Dosage: TWICE DAILY
     Dates: start: 20201005, end: 20201009
  28. POTASSIUM CHLORIDE. [Concomitant]
     Active Substance: POTASSIUM CHLORIDE
     Dosage: ONCE
     Dates: start: 20201013, end: 20201013
  29. HYDROMORPHONE [Concomitant]
     Active Substance: HYDROMORPHONE
     Dosage: ONCE
     Dates: start: 20201012, end: 20201012
  30. DEXAMETHASONE. [Concomitant]
     Active Substance: DEXAMETHASONE
     Dosage: FOUR TIMES DAILY
     Dates: start: 20201019, end: 20201019
  31. CALCIUM CARBONATE. [Concomitant]
     Active Substance: CALCIUM CARBONATE
     Dosage: DAILY
     Dates: start: 20201013
  32. SODIUM PHOSPHATE [Concomitant]
     Active Substance: SODIUM PHOSPHATE
     Dosage: ONCE
     Dates: start: 20201014, end: 20201014
  33. CYCLOPHOSPHAMIDE. [Suspect]
     Active Substance: CYCLOPHOSPHAMIDE
     Dosage: 500 MG.M2
     Route: 042
     Dates: start: 20201002, end: 20201002
  34. METOPROLOL. [Concomitant]
     Active Substance: METOPROLOL
     Dosage: DAILY
  35. SODIUM CHLORIDE 0.9% [Concomitant]
     Active Substance: SODIUM CHLORIDE
     Dosage: TWICE DAILY
     Dates: start: 20200930, end: 20201002
  36. SODIUM CHLORIDE 0.9% [Concomitant]
     Active Substance: SODIUM CHLORIDE
     Dosage: ONCE
     Dates: start: 20201010, end: 20201010
  37. SODIUM CHLORIDE 0.9% [Concomitant]
     Active Substance: SODIUM CHLORIDE
     Dosage: TWICE DAILY
     Dates: start: 20201011, end: 20201011
  38. DIPHENHYDRAMINE. [Concomitant]
     Active Substance: DIPHENHYDRAMINE
     Dosage: ONCE
     Dates: start: 20201005, end: 20201005
  39. POTASSIUM CHLORIDE. [Concomitant]
     Active Substance: POTASSIUM CHLORIDE
     Dosage: ONCE
     Dates: start: 20201007, end: 20201007
  40. CEFEPIME [Concomitant]
     Active Substance: CEFEPIME HYDROCHLORIDE
     Dosage: ONCE
     Dates: start: 20201010, end: 20201010
  41. TOCILIZUMAB. [Concomitant]
     Active Substance: TOCILIZUMAB
     Dosage: DAILY
     Dates: start: 20201011, end: 20201012
  42. DEXAMETHASONE. [Concomitant]
     Active Substance: DEXAMETHASONE
     Dosage: 10 MG, Q6H
     Route: 042
  43. PROCHLORPERAZINE. [Concomitant]
     Active Substance: PROCHLORPERAZINE
     Dosage: ONCE
     Dates: start: 20201013, end: 20201013
  44. ACETAMINOPHEN. [Concomitant]
     Active Substance: ACETAMINOPHEN
     Dosage: TWICE DAILY
     Dates: start: 20201011, end: 20201011
  45. VORICONAZOLE. [Concomitant]
     Active Substance: VORICONAZOLE
     Dosage: TWICE DAILY
     Dates: start: 20201005
  46. DEXAMETHASONE. [Concomitant]
     Active Substance: DEXAMETHASONE
     Dosage: TWICE DAILY
     Dates: start: 20201018, end: 20201018
  47. DEXAMETHASONE. [Concomitant]
     Active Substance: DEXAMETHASONE
     Dosage: ONCE
     Dates: start: 20201020, end: 20201020
  48. CEFAZOLIN [Concomitant]
     Active Substance: CEFAZOLIN
     Dosage: ONCE
     Dates: start: 20200929, end: 20200929
  49. SODIUM CHLORIDE 0.9% [Concomitant]
     Active Substance: SODIUM CHLORIDE
     Dosage: AS NECESSARY
     Dates: start: 20201015
  50. LEVETIRACETAM. [Concomitant]
     Active Substance: LEVETIRACETAM
     Dosage: TWICE DAILY
     Dates: start: 20201005
  51. ACETAMINOPHEN. [Concomitant]
     Active Substance: ACETAMINOPHEN
     Dosage: ONCE
     Dates: start: 20201012, end: 20201012
  52. ACYCLOVIR [ACICLOVIR] [Concomitant]
     Active Substance: ACYCLOVIR
     Dosage: TWICE DAILY
     Dates: start: 20201005
  53. ALLOPURINOL. [Concomitant]
     Active Substance: ALLOPURINOL
     Dosage: DAILY
     Dates: start: 20201005, end: 20201012
  54. POTASSIUM CHLORIDE. [Concomitant]
     Active Substance: POTASSIUM CHLORIDE
     Dosage: AS NECESSARY
     Dates: start: 20201015
  55. BLOOD CELLS, PACKED HUMAN [Concomitant]
     Active Substance: HUMAN RED BLOOD CELL
     Dosage: ONCE
     Dates: start: 20201013, end: 20201013
  56. FLUDARABINE [Suspect]
     Active Substance: FLUDARABINE PHOSPHATE
     Indication: BONE MARROW CONDITIONING REGIMEN
     Dosage: 30 MG/M2
     Route: 042
     Dates: start: 20200930, end: 20200930
  57. FLUDARABINE [Suspect]
     Active Substance: FLUDARABINE PHOSPHATE
     Dosage: 30 MG/M2
     Route: 042
     Dates: start: 20201001, end: 20201001
  58. SODIUM CHLORIDE 0.9% [Concomitant]
     Active Substance: SODIUM CHLORIDE
     Dosage: DAILY
     Dates: start: 20201005, end: 20201008
  59. POTASSIUM CHLORIDE. [Concomitant]
     Active Substance: POTASSIUM CHLORIDE
     Dosage: ONCE
     Dates: start: 20201011, end: 20201011
  60. DOXAZOSIN [Concomitant]
     Active Substance: DOXAZOSIN MESYLATE
     Dosage: DAILY
     Dates: start: 20201014
  61. SODIUM PHOSPHATE [Concomitant]
     Active Substance: SODIUM PHOSPHATE
     Dosage: AS NECESSARY
     Dates: start: 20201015

REACTIONS (2)
  - Aphasia [Recovered/Resolved]
  - Somnolence [Recovered/Resolved]

NARRATIVE: CASE EVENT DATE: 20201018
